FAERS Safety Report 5566707-8 (Version None)
Quarter: 2007Q4

REPORT INFORMATION
  Report Type: 
  Country: None (occurrence: None)
  Receive Date: 20071218
  Receipt Date: 20071218
  Transmission Date: 20080405
  Serious: Yes (Other)
  Sender: FDA-Public Use
  Company Number: None

PATIENT
  Age: 38 Year
  Sex: Female
  Weight: 68.0396 kg

DRUGS (1)
  1. CHANTIX [Suspect]
     Indication: SMOKING CESSATION THERAPY
     Dosage: .5  DAILY FIRST 3 DAYS  PO;  1.0  TWICE DAILY  PO
     Route: 048
     Dates: start: 20070611, end: 20070711

REACTIONS (3)
  - DRUG WITHDRAWAL SYNDROME [None]
  - MAJOR DEPRESSION [None]
  - PSYCHOTIC DISORDER [None]
